FAERS Safety Report 21660854 (Version 5)
Quarter: 2022Q4

REPORT INFORMATION
  Report Type: Report from Study
  Country: US (occurrence: US)
  Receive Date: 20221130
  Receipt Date: 20221220
  Transmission Date: 20230113
  Serious: Yes (Other)
  Sender: FDA-Public Use
  Company Number: US-002147023-NVSC2022US264974

PATIENT
  Sex: Female

DRUGS (4)
  1. ENTRESTO [Suspect]
     Active Substance: SACUBITRIL\VALSARTAN
     Indication: Product used for unknown indication
     Dosage: 1 DOSAGE FORM, QD
     Route: 048
     Dates: start: 202207
  2. RITUXAN [Suspect]
     Active Substance: RITUXIMAB
     Indication: Pemphigoid
     Dosage: UNK
     Route: 065
  3. RITUXAN [Suspect]
     Active Substance: RITUXIMAB
     Dosage: 2 DOSAGE FORM
     Route: 065
     Dates: start: 202208
  4. CELLCEPT [Suspect]
     Active Substance: MYCOPHENOLATE MOFETIL
     Indication: Pemphigoid
     Dosage: UNK
     Route: 065

REACTIONS (12)
  - Pemphigoid [Unknown]
  - Renal disorder [Unknown]
  - Dyspnoea [Unknown]
  - Fluid retention [Unknown]
  - Blood glucose fluctuation [Unknown]
  - Fall [Unknown]
  - Cough [Unknown]
  - Asthenia [Unknown]
  - Fatigue [Unknown]
  - Skin lesion [Unknown]
  - Underdose [Unknown]
  - Inappropriate schedule of product administration [Unknown]
